FAERS Safety Report 12136731 (Version 1)
Quarter: 2016Q1

REPORT INFORMATION
  Report Type: Spontaneous
  Country: US (occurrence: None)
  Receive Date: 20160301
  Receipt Date: 20160301
  Transmission Date: 20160526
  Serious: Yes (Hospitalization)
  Sender: FDA-Public Use
  Company Number: None

PATIENT
  Age: 67 Year
  Sex: Male
  Weight: 73 kg

DRUGS (1)
  1. SULFAMETHOXAZOLE/TRIMETHOPRIM [Suspect]
     Active Substance: SULFAMETHOXAZOLE\TRIMETHOPRIM
     Route: 048
     Dates: start: 20150831, end: 20150910

REACTIONS (7)
  - Pemphigoid [None]
  - Paraesthesia [None]
  - Drug eruption [None]
  - Pyoderma [None]
  - Rash [None]
  - Papule [None]
  - Dermatitis contact [None]

NARRATIVE: CASE EVENT DATE: 20151104
